FAERS Safety Report 9015547 (Version 1)
Quarter: 2013Q1

REPORT INFORMATION
  Report Type: Spontaneous
  Country: FR (occurrence: None)
  Receive Date: 20130103
  Receipt Date: 20130103
  Transmission Date: 20140127
  Serious: Yes (Other)
  Sender: FDA-Public Use
  Company Number: 2012P1068326

PATIENT
  Age: 47 Year
  Sex: Female

DRUGS (3)
  1. SUFENTANIL CITRATE [Suspect]
     Indication: GENERAL ANAESTHESIA
     Route: 042
  2. PROPOFOL [Suspect]
     Indication: GENERAL ANAESTHESIA
     Route: 042
  3. CISATRACURIUM [Suspect]
     Indication: GENERAL ANAESTHESIA
     Route: 042

REACTIONS (2)
  - Peripheral nerve palsy [None]
  - VIIth nerve paralysis [None]
